FAERS Safety Report 13790167 (Version 2)
Quarter: 2017Q3

REPORT INFORMATION
  Report Type: Spontaneous
  Country: US (occurrence: US)
  Receive Date: 20170725
  Receipt Date: 20170816
  Transmission Date: 20171127
  Serious: No
  Sender: FDA-Public Use
  Company Number: US-TEVA-790610ACC

PATIENT
  Age: 39 Year
  Sex: Female

DRUGS (6)
  1. ATORVASTATIN [Concomitant]
     Active Substance: ATORVASTATIN
  2. MULTIVITAMIN [Concomitant]
     Active Substance: VITAMINS
  3. VITAMIN D [Concomitant]
     Active Substance: CHOLECALCIFEROL
  4. PARAGARD T 380A [Suspect]
     Active Substance: COPPER
     Indication: CONTRACEPTION
     Route: 065
  5. FISH OIL [Concomitant]
     Active Substance: FISH OIL
  6. PROBIOTIC [Concomitant]
     Active Substance: PROBIOTICS NOS

REACTIONS (2)
  - Complication associated with device [Not Recovered/Not Resolved]
  - Device breakage [Not Recovered/Not Resolved]

NARRATIVE: CASE EVENT DATE: 20170713
